FAERS Safety Report 17061187 (Version 1)
Quarter: 2019Q4

REPORT INFORMATION
  Report Type: Spontaneous
  Country: KR (occurrence: KR)
  Receive Date: 20191121
  Receipt Date: 20191121
  Transmission Date: 20200122
  Serious: Yes (Hospitalization, Other)
  Sender: FDA-Public Use
  Company Number: KR-JNJFOC-20191121669

PATIENT
  Age: 78 Year
  Sex: Male
  Weight: 48 kg

DRUGS (7)
  1. LEVOFLOXACIN. [Suspect]
     Active Substance: LEVOFLOXACIN
     Indication: PNEUMONIA
     Route: 042
  2. CHOLINE ALFOSCERATE [Concomitant]
     Active Substance: CHOLINE ALFOSCERATE
     Route: 048
  3. LEVOFLOXACIN. [Suspect]
     Active Substance: LEVOFLOXACIN
     Route: 042
  4. NIZATIDINE. [Concomitant]
     Active Substance: NIZATIDINE
     Route: 048
  5. ERDOSTEINE [Concomitant]
     Active Substance: ERDOSTEINE
     Route: 048
  6. REBAMIPIDE [Concomitant]
     Active Substance: REBAMIPIDE
     Indication: PRODUCT USED FOR UNKNOWN INDICATION
     Route: 048
  7. CLOPIDOGREL [Concomitant]
     Active Substance: CLOPIDOGREL BISULFATE
     Route: 048

REACTIONS (8)
  - Confusional state [Recovered/Resolved]
  - Insomnia [Recovered/Resolved]
  - Neurotoxicity [Recovered/Resolved]
  - Hallucination, visual [Recovered/Resolved]
  - Disorientation [Recovered/Resolved]
  - Irritability [Recovered/Resolved]
  - Generalised tonic-clonic seizure [Recovered/Resolved]
  - Delusion [Recovered/Resolved]
